FAERS Safety Report 6030975-9 (Version None)
Quarter: 2009Q1

REPORT INFORMATION
  Report Type: 
  Country: None (occurrence: None)
  Receive Date: 20090107
  Receipt Date: 20090105
  Transmission Date: 20090719
  Serious: Yes (Disabling, Other)
  Sender: FDA-Public Use
  Company Number: US-RANBAXY-2008US-19831

PATIENT

DRUGS (10)
  1. VERAPAMIL TABLETS BP 40MG [Suspect]
     Indication: ATRIAL FIBRILLATION
     Dosage: 40 MG, TID
     Route: 065
     Dates: start: 20080801
  2. SIMVASTATIN [Suspect]
     Indication: ATRIAL FIBRILLATION
     Dosage: 40 MG, UNK
     Route: 065
     Dates: end: 20081101
  3. FUROSEMIDE [Concomitant]
     Indication: DRUG USE FOR UNKNOWN INDICATION
     Dosage: 40 MG, UNK
     Route: 065
  4. ACETYLSALICYLIC ACID [Concomitant]
     Indication: DRUG USE FOR UNKNOWN INDICATION
     Dosage: 75.000000 MG, UNK
     Route: 065
  5. LISINOPRIL [Concomitant]
     Indication: DRUG USE FOR UNKNOWN INDICATION
     Dosage: 20.000000 MG, UNK
     Route: 065
  6. ACETAMINOPHEN W/ CODEINE [Concomitant]
     Indication: DRUG USE FOR UNKNOWN INDICATION
     Dosage: 2.000000 MG, UNK
     Route: 065
  7. BRIMONIDINE [Concomitant]
     Indication: DRUG USE FOR UNKNOWN INDICATION
     Route: 065
  8. ALBUTEROL [Concomitant]
     Indication: CHRONIC OBSTRUCTIVE PULMONARY DISEASE
     Route: 065
  9. SALMETEROL [Concomitant]
     Indication: CHRONIC OBSTRUCTIVE PULMONARY DISEASE
     Dosage: 2.000000 MG, BID
     Route: 065
  10. BECLOMETAZONE DIPROPIONATE [Concomitant]
     Indication: CHRONIC OBSTRUCTIVE PULMONARY DISEASE
     Route: 065

REACTIONS (3)
  - BLOOD CREATINE PHOSPHOKINASE INCREASED [None]
  - HYPOKINESIA [None]
  - MYOSITIS [None]
